FAERS Safety Report 11598846 (Version 2)
Quarter: 2018Q4

REPORT INFORMATION
  Report Type: Spontaneous
  Country: US (occurrence: US)
  Receive Date: 20151006
  Receipt Date: 20181105
  Transmission Date: 20190204
  Serious: Yes (Disabling)
  Sender: FDA-Public Use
  Company Number: US-SA-2015SA149166

PATIENT
  Age: 61 Year
  Sex: Female

DRUGS (2)
  1. LANTUS SOLOSTAR [Suspect]
     Active Substance: INSULIN GLARGINE
     Indication: TYPE 2 DIABETES MELLITUS
     Dosage: UNK UNK, QD
     Route: 065
     Dates: start: 2006
  2. LANTUS SOLOSTAR [Suspect]
     Active Substance: INSULIN GLARGINE
     Dosage: 6 IU, QD
     Dates: start: 2014

REACTIONS (7)
  - Device operational issue [Unknown]
  - Polyneuropathy [Unknown]
  - Complex regional pain syndrome [Unknown]
  - Blood glucose increased [Unknown]
  - Peroneal nerve palsy [Unknown]
  - Injection site haemorrhage [Unknown]
  - Product dose omission [Unknown]
